FAERS Safety Report 16906080 (Version 3)
Quarter: 2019Q4

REPORT INFORMATION
  Report Type: Spontaneous
  Country: ES (occurrence: ES)
  Receive Date: 20191010
  Receipt Date: 20191218
  Transmission Date: 20200122
  Serious: Yes (Hospitalization, Other)
  Sender: FDA-Public Use
  Company Number: ES-AUROBINDO-AUR-APL-2019-065830

PATIENT
  Age: 80 Year
  Sex: Female

DRUGS (4)
  1. ALOPURINOL [Suspect]
     Active Substance: ALLOPURINOL
     Indication: HYPERURICAEMIA
     Dosage: 300 MILLIGRAM, ONCE A DAY
     Route: 048
     Dates: start: 20170505, end: 20170606
  2. ACICLOVIR [Suspect]
     Active Substance: ACYCLOVIR
     Indication: ANTIVIRAL PROPHYLAXIS
     Dosage: 800 MILLIGRAM, ONCE A DAY
     Route: 048
     Dates: start: 20170517, end: 20170606
  3. LENALIDOMIDE [Suspect]
     Active Substance: LENALIDOMIDE
     Indication: PLASMA CELL MYELOMA
     Dosage: 25 MILLIGRAM, DAILY,25MG CADA 24 HORAS (21 D?AS)
     Route: 048
     Dates: start: 20170517, end: 20170606
  4. TRIMETOPRIM [Suspect]
     Active Substance: TRIMETHOPRIM
     Indication: ANTIVIRAL PROPHYLAXIS
     Dosage: 160 MILLIGRAM, TWO TIMES A DAY, SATURDAYS AND SUNDAYS (320 MG ONCE A DAY)
     Route: 048
     Dates: start: 20170526, end: 20170605

REACTIONS (3)
  - Renal failure [Recovered/Resolved]
  - Hepatitis [Recovered/Resolved]
  - Drug reaction with eosinophilia and systemic symptoms [Recovered/Resolved]

NARRATIVE: CASE EVENT DATE: 20170530
